FAERS Safety Report 6068425-9 (Version None)
Quarter: 2009Q1

REPORT INFORMATION
  Report Type: 
  Country: None (occurrence: None)
  Receive Date: 20090206
  Receipt Date: 20090129
  Transmission Date: 20090719
  Serious: Yes (Death)
  Sender: FDA-Public Use
  Company Number: US-PURDUE-USA_2009_0036762

PATIENT
  Age: 58 Year
  Sex: Male

DRUGS (1)
  1. OXYIR CAPSULES 5 MG [Suspect]
     Indication: CANCER PAIN
     Dosage: 2 CAPSL, Q3H PRN

REACTIONS (1)
  - DEATH [None]
